FAERS Safety Report 18709223 (Version 3)
Quarter: 2021Q2

REPORT INFORMATION
  Report Type: Spontaneous
  Country: US (occurrence: US)
  Receive Date: 20210107
  Receipt Date: 20210504
  Transmission Date: 20210717
  Serious: Yes (Hospitalization)
  Sender: FDA-Public Use
  Company Number: US-JNJFOC-20201252289

PATIENT
  Age: 55 Year
  Sex: Male
  Weight: 137.11 kg

DRUGS (5)
  1. ASPIRINE [Concomitant]
     Active Substance: ASPIRIN
  2. INVEGA SUSTENNA [Suspect]
     Active Substance: PALIPERIDONE PALMITATE
  3. DEPAKOTE [Concomitant]
     Active Substance: DIVALPROEX SODIUM
  4. INVEGA SUSTENNA [Suspect]
     Active Substance: PALIPERIDONE PALMITATE
  5. INVEGA SUSTENNA [Suspect]
     Active Substance: PALIPERIDONE PALMITATE
     Indication: SLEEP APNOEA SYNDROME
     Route: 030
     Dates: start: 202008, end: 202009

REACTIONS (8)
  - Hospitalisation [Unknown]
  - Product use in unapproved indication [Unknown]
  - Abnormal behaviour [Unknown]
  - Pollakiuria [Unknown]
  - Toxicity to various agents [Unknown]
  - Drug ineffective [Unknown]
  - Off label use [Unknown]
  - Malnutrition [Unknown]
